FAERS Safety Report 6444532-3 (Version None)
Quarter: 2009Q4

REPORT INFORMATION
  Report Type: 
  Country: None (occurrence: None)
  Receive Date: 20091117
  Receipt Date: 20091117
  Transmission Date: 20100525
  Serious: Yes (Life-Threatening, Hospitalization, Disabling)
  Sender: FDA-Public Use
  Company Number: None

PATIENT
  Age: 74 Year
  Sex: Male
  Weight: 67 kg

DRUGS (1)
  1. AMIODARONE HCL [Suspect]
     Indication: VENTRICULAR FIBRILLATION
     Dosage: 200 MG TABLET 1 DAILY AT BEDTIME PO
     Route: 048
     Dates: start: 20051109, end: 20091102

REACTIONS (5)
  - COUGH [None]
  - CREPITATIONS [None]
  - HYPOTENSION [None]
  - INFLUENZA [None]
  - PULMONARY TOXICITY [None]
